FAERS Safety Report 19391112 (Version 4)
Quarter: 2021Q4

REPORT INFORMATION
  Report Type: Report from Study
  Country: LT (occurrence: LT)
  Receive Date: 20210609
  Receipt Date: 20211027
  Transmission Date: 20220303
  Serious: Yes (Other)
  Sender: FDA-Public Use
  Company Number: LT-CELLTRION INC.-2021LT007504

PATIENT

DRUGS (5)
  1. TRASTUZUMAB [Suspect]
     Active Substance: TRASTUZUMAB
     Indication: Product used for unknown indication
     Dosage: UNK
     Route: 065
  2. ALPELISIB [Suspect]
     Active Substance: ALPELISIB
     Indication: Breast cancer metastatic
     Dosage: UNK
     Route: 048
  3. ALPELISIB [Suspect]
     Active Substance: ALPELISIB
     Dosage: 300 MILLIGRAM
     Route: 048
     Dates: start: 20200917
  4. ALPELISIB [Suspect]
     Active Substance: ALPELISIB
     Dosage: 200 MILLIGRAM, QD
     Route: 048
     Dates: start: 20210125
  5. LETROZOLE [Concomitant]
     Active Substance: LETROZOLE
     Indication: Product used for unknown indication
     Dosage: 2.5 MILLIGRAM
     Route: 065
     Dates: start: 20200916, end: 20201110

REACTIONS (2)
  - Osteonecrosis of jaw [Recovering/Resolving]
  - Hyperglycaemia [Not Recovered/Not Resolved]

NARRATIVE: CASE EVENT DATE: 20201014
